FAERS Safety Report 10032783 (Version 4)
Quarter: 2015Q3

REPORT INFORMATION
  Report Type: Spontaneous
  Country: US (occurrence: US)
  Receive Date: 20140324
  Receipt Date: 20150916
  Transmission Date: 20151125
  Serious: Yes (Hospitalization, Other)
  Sender: FDA-Public Use
  Company Number: US-DSJP-DSU-2014-101358

PATIENT

DRUGS (2)
  1. BENICAR [Suspect]
     Active Substance: OLMESARTAN MEDOXOMIL
     Indication: HYPERTENSION
     Dosage: 40 MG, QD
     Route: 048
  2. BENICAR [Suspect]
     Active Substance: OLMESARTAN MEDOXOMIL
     Dosage: 40 MG, QD
     Route: 048
     Dates: end: 2010

REACTIONS (15)
  - Renal colic [Unknown]
  - Haemorrhoidal haemorrhage [Unknown]
  - Sepsis [Unknown]
  - Malabsorption [Recovered/Resolved]
  - Barrett^s oesophagus [Unknown]
  - Rib fracture [Unknown]
  - Pneumonia [Unknown]
  - Hiatus hernia [Unknown]
  - HLA marker study positive [Unknown]
  - Diverticulum intestinal [Unknown]
  - Hepatic cyst [Unknown]
  - Constipation [Unknown]
  - Intussusception [Unknown]
  - Gastrooesophageal reflux disease [Unknown]
  - Reflux gastritis [Unknown]

NARRATIVE: CASE EVENT DATE: 201008
